FAERS Safety Report 16864762 (Version 3)
Quarter: 2019Q4

REPORT INFORMATION
  Report Type: Report from Study
  Country: US (occurrence: US)
  Receive Date: 20190929
  Receipt Date: 20191105
  Transmission Date: 20200122
  Serious: Yes (Death, Hospitalization, Other)
  Sender: FDA-Public Use
  Company Number: PHEH2019US039912

PATIENT
  Age: 66 Year
  Sex: Male
  Weight: 74 kg

DRUGS (1)
  1. KYMRIAH [Suspect]
     Active Substance: TISAGENLECLEUCEL
     Indication: DIFFUSE LARGE B-CELL LYMPHOMA
     Dosage: ONCE/SINGLE
     Route: 042
     Dates: start: 20190913, end: 20190913

REACTIONS (10)
  - Blood pressure decreased [Unknown]
  - Hypotension [Recovered/Resolved]
  - Pyrexia [Unknown]
  - Cytokine release syndrome [Recovered/Resolved]
  - Death [Fatal]
  - Oxygen consumption decreased [Unknown]
  - Infection [Unknown]
  - Heart rate increased [Unknown]
  - Cytokine release syndrome [Unknown]
  - Hypoxia [Unknown]

NARRATIVE: CASE EVENT DATE: 20190916
